FAERS Safety Report 14368238 (Version 1)
Quarter: 2018Q1

REPORT INFORMATION
  Report Type: Spontaneous
  Country: CA (occurrence: CA)
  Receive Date: 20180109
  Receipt Date: 20180109
  Transmission Date: 20180509
  Serious: Yes (Hospitalization, Other)
  Sender: FDA-Public Use
  Company Number: CA-AKRON, INC.-2039753

PATIENT
  Sex: Male

DRUGS (1)
  1. COSOPT [Suspect]
     Active Substance: DORZOLAMIDE HYDROCHLORIDE\TIMOLOL MALEATE
     Route: 047

REACTIONS (7)
  - Eye irritation [Recovering/Resolving]
  - Visual acuity reduced [Recovering/Resolving]
  - Visual acuity tests abnormal [Recovering/Resolving]
  - Ulcerative keratitis [Unknown]
  - Vision blurred [Not Recovered/Not Resolved]
  - Eye pain [Recovering/Resolving]
  - Product quality issue [Unknown]
